FAERS Safety Report 15564039 (Version 2)
Quarter: 2018Q4

REPORT INFORMATION
  Report Type: Spontaneous
  Country: FR (occurrence: FR)
  Receive Date: 20181030
  Receipt Date: 20181101
  Transmission Date: 20190205
  Serious: Yes (Other)
  Sender: FDA-Public Use
  Company Number: FR-ASTELLAS-2018US042754

PATIENT
  Sex: Female

DRUGS (3)
  1. ADVAGRAF [Suspect]
     Active Substance: TACROLIMUS
     Dosage: UNK, UNKNOWN FREQ. (OVERDOSE)
     Route: 065
     Dates: end: 201809
  2. ADVAGRAF [Suspect]
     Active Substance: TACROLIMUS
     Indication: PRODUCT USED FOR UNKNOWN INDICATION
     Dosage: UNK, UNKNOWN FREQ.
     Route: 065
     Dates: start: 201712
  3. ADVAGRAF [Suspect]
     Active Substance: TACROLIMUS
     Dosage: UNK, UNKNOWN FREQ. (UNDERDOSE)
     Route: 065

REACTIONS (6)
  - Transplant rejection [Unknown]
  - Oedema [Unknown]
  - Graft loss [Unknown]
  - Overdose [Unknown]
  - Blood creatinine increased [Unknown]
  - Underdose [Unknown]

NARRATIVE: CASE EVENT DATE: 201804
